FAERS Safety Report 9568785 (Version 1)
Quarter: 2013Q3

REPORT INFORMATION
  Report Type: Spontaneous
  Country: US (occurrence: US)
  Receive Date: 20130930
  Receipt Date: 20130930
  Transmission Date: 20140515
  Serious: No
  Sender: FDA-Public Use
  Company Number: US-AMGEN-USASP2013061702

PATIENT
  Age: 75 Year
  Sex: Female

DRUGS (2)
  1. ENBREL [Suspect]
     Indication: PSORIATIC ARTHROPATHY
     Dosage: 25 MG, 3 TIMES/WK
     Route: 065
     Dates: start: 20030301
  2. METHOTREXATE [Concomitant]
     Dosage: 2.5MG (4TABS) WEEKLY
     Dates: start: 2002

REACTIONS (6)
  - Blood creatinine increased [Not Recovered/Not Resolved]
  - Arthralgia [Recovered/Resolved]
  - Skin plaque [Recovered/Resolved]
  - Dental caries [Recovered/Resolved]
  - Bronchitis chronic [Not Recovered/Not Resolved]
  - Sinusitis [Not Recovered/Not Resolved]
